FAERS Safety Report 5710151-7 (Version None)
Quarter: 2008Q2

REPORT INFORMATION
  Report Type: 
  Country: None (occurrence: None)
  Receive Date: 20080418
  Receipt Date: 20080406
  Transmission Date: 20081010
  Serious: Yes (Hospitalization, Other)
  Sender: FDA-Public Use
  Company Number: US-PFIZER INC-2007068619

PATIENT
  Sex: Female
  Weight: 103 kg

DRUGS (7)
  1. CHANTIX [Suspect]
     Indication: EX-SMOKER
     Dates: start: 20070808, end: 20070801
  2. DILANTIN [Suspect]
     Indication: CONVULSION
  3. NICOTINE [Suspect]
  4. KEPPRA [Concomitant]
  5. TOPAMAX [Concomitant]
  6. KLONOPIN [Concomitant]
  7. PROZAC [Concomitant]

REACTIONS (5)
  - AURA [None]
  - CONVULSION [None]
  - DRUG HYPERSENSITIVITY [None]
  - DRUG INEFFECTIVE [None]
  - LUMBAR PUNCTURE [None]
